FAERS Safety Report 17467302 (Version 3)
Quarter: 2020Q3

REPORT INFORMATION
  Report Type: Spontaneous
  Country: US (occurrence: US)
  Receive Date: 20200227
  Receipt Date: 20200928
  Transmission Date: 20201102
  Serious: No
  Sender: FDA-Public Use
  Company Number: US-PFIZER INC-2017054403

PATIENT
  Age: 88 Year
  Sex: Female

DRUGS (13)
  1. FENOFIBRATE. [Concomitant]
     Active Substance: FENOFIBRATE
     Dosage: 145 MG, 1X/DAY[1@ NIGHT]
  2. FAMOTIDINE. [Concomitant]
     Active Substance: FAMOTIDINE
     Dosage: 20 MG, 1X/DAY [1 @ NIGHT]
  3. ASPIRIN EC [Concomitant]
     Active Substance: ASPIRIN
     Dosage: 81 MG, ALTERNATE DAY [1 EVERY OTHER DAY]
  4. CALCIUM [Concomitant]
     Active Substance: CALCIUM
     Dosage: 1200 MG, 1X/DAY
  5. LYRICA [Suspect]
     Active Substance: PREGABALIN
     Indication: MULTIFOCAL MOTOR NEUROPATHY
     Dosage: 150 MG, DAILY (3 CAPS AT NIGHT)
  6. FISH OIL [Concomitant]
     Active Substance: FISH OIL
     Dosage: 1600 MG, 1X/DAY
  7. XARELTO [Concomitant]
     Active Substance: RIVAROXABAN
     Dosage: 20 MG, 1X/DAY[1@ SUPPER]
  8. LYSINE [Concomitant]
     Active Substance: LYSINE
     Dosage: 500 MG, 1X/DAY[1 @ DAY]
  9. STOOL SOFTENER (DOCUSATE) [Concomitant]
     Active Substance: DOCUSATE
     Dosage: 100 MG, 2X/DAY
  10. LYRICA [Suspect]
     Active Substance: PREGABALIN
     Indication: RADICULOPATHY
     Dosage: 150 MG, ONCE A DAY (TAKE AT BEDTIME)
     Route: 048
  11. DILTIAZEM. [Concomitant]
     Active Substance: DILTIAZEM
     Dosage: 120 MG, 2X/DAY[2@DAY]
  12. AMIODARONE [Concomitant]
     Active Substance: AMIODARONE
     Dosage: 100 MG, 1X/DAY [1 @ SUPPER]
  13. CENTRUM SILVER [Concomitant]
     Active Substance: MINERALS\VITAMINS
     Dosage: UNK UNK, 1X/DAY[1 @DAY]

REACTIONS (1)
  - Malaise [Unknown]
